FAERS Safety Report 24558932 (Version 1)
Quarter: 2024Q4

REPORT INFORMATION
  Report Type: Report from Study
  Country: US (occurrence: US)
  Receive Date: 20241029
  Receipt Date: 20241029
  Transmission Date: 20250115
  Serious: Yes (Hospitalization)
  Sender: ABBVIE
  Company Number: US-ABBVIE-5978689

PATIENT
  Age: 70 Year
  Sex: Male

DRUGS (1)
  1. HUMIRA [Suspect]
     Active Substance: ADALIMUMAB
     Indication: Uveitis
     Dosage: CITRATE FREE
     Route: 058

REACTIONS (4)
  - Diarrhoea [Unknown]
  - Cardiac disorder [Recovered/Resolved]
  - Renal disorder [Recovered/Resolved]
  - Blood pressure measurement [Recovered/Resolved]

NARRATIVE: CASE EVENT DATE: 20240201
